FAERS Safety Report 13107144 (Version 1)
Quarter: 2017Q1

REPORT INFORMATION
  Report Type: Spontaneous
  Country: DE (occurrence: DE)
  Receive Date: 20170112
  Receipt Date: 20170112
  Transmission Date: 20170428
  Serious: Yes (Hospitalization)
  Sender: FDA-Public Use
  Company Number: DE-AMGEN-DEUSP2017003423

PATIENT
  Age: 61 Year
  Sex: Female

DRUGS (2)
  1. ENBREL [Suspect]
     Active Substance: ETANERCEPT
     Indication: RHEUMATOID ARTHRITIS
     Dosage: 50 MG, WEEKLY
     Route: 065
     Dates: start: 20140710
  2. CORTISON [Concomitant]
     Active Substance: CORTISONE ACETATE
     Dosage: 4 MG, UNK

REACTIONS (3)
  - Nervous system disorder [Not Recovered/Not Resolved]
  - Foot deformity [Not Recovered/Not Resolved]
  - Osteoarthritis [Not Recovered/Not Resolved]
